FAERS Safety Report 7737222-8 (Version None)
Quarter: 2011Q3

REPORT INFORMATION
  Report Type: 
  Country: None (occurrence: None)
  Receive Date: 20110902
  Receipt Date: 20110818
  Transmission Date: 20111222
  Serious: Yes (Hospitalization)
  Sender: FDA-Public Use
  Company Number: FR-1185524

PATIENT
  Age: 61 Year
  Sex: Male

DRUGS (11)
  1. TRUSOPT [Suspect]
     Dosage: OPHTHALMIC
     Route: 047
     Dates: start: 20101101, end: 20110121
  2. KAYEXALATE [Concomitant]
  3. GENTAMICIN [Concomitant]
  4. DIPRIVAN [Suspect]
     Indication: ANAESTHESIA
     Dosage: 200 MG, INTRAVENOUS
     Route: 042
     Dates: start: 20101123, end: 20101123
  5. TRAVATAN [Concomitant]
  6. COSOPT [Suspect]
     Dosage: OPTHALMIC
     Route: 047
     Dates: start: 20101101, end: 20110121
  7. SUFENTANIL CITRATE [Suspect]
     Indication: ANAESTHESIA
     Dosage: 20 MCG, INTRAVENOUS
     Route: 042
     Dates: start: 20101123, end: 20101123
  8. ACETAMINOPHEN [Concomitant]
  9. TOBRADEX [Suspect]
     Indication: EYE DISORDER
     Dosage: OPTHALMIC
     Route: 047
     Dates: start: 20101126
  10. DIAMOX [Suspect]
     Dosage: ORAL
     Route: 048
     Dates: start: 20101126, end: 20101223
  11. ROCEPHIN [Concomitant]

REACTIONS (3)
  - CONJUNCTIVITIS [None]
  - CYTOMEGALOVIRUS TEST POSITIVE [None]
  - DRUG RASH WITH EOSINOPHILIA AND SYSTEMIC SYMPTOMS [None]
